FAERS Safety Report 21346185 (Version 1)
Quarter: 2022Q3

REPORT INFORMATION
  Report Type: Other
  Country: PT (occurrence: PT)
  Receive Date: 20220917
  Receipt Date: 20220917
  Transmission Date: 20221027
  Serious: Yes (Other)
  Sender: FDA-Public Use
  Company Number: PT-CELLTRION INC.-2022PT014650

PATIENT

DRUGS (2)
  1. TRUXIMA [Suspect]
     Active Substance: RITUXIMAB-ABBS
     Indication: B-cell small lymphocytic lymphoma
     Dosage: 375MG/M2  EM DIA CICLO DE DIAS - 1 ADMINISTRACAO
     Route: 042
     Dates: start: 20220818
  2. VENETOCLAX [Concomitant]
     Active Substance: VENETOCLAX
     Dosage: INICIO DE 20MG/DIA, DURANTE 7 DIAS COM AUMENTO GRADUAL DURANTE 5 SEMANAS ATE 400MG/DIA DE D1 A D24
     Route: 048
     Dates: start: 20220713

REACTIONS (2)
  - Epigastric discomfort [Recovered/Resolved]
  - Vomiting [Recovered/Resolved]

NARRATIVE: CASE EVENT DATE: 20220818
